FAERS Safety Report 20388605 (Version 3)
Quarter: 2022Q2

REPORT INFORMATION
  Report Type: Report from Study
  Country: US (occurrence: US)
  Receive Date: 20220128
  Receipt Date: 20220528
  Transmission Date: 20220721
  Serious: Yes (Hospitalization, Other)
  Sender: FDA-Public Use
  Company Number: US-ABBVIE-21K-163-4205997-00

PATIENT
  Sex: Female

DRUGS (5)
  1. HUMIRA [Suspect]
     Active Substance: ADALIMUMAB
     Indication: Rheumatoid arthritis
     Dosage: CITRATE FREE
     Route: 058
  2. HUMIRA [Suspect]
     Active Substance: ADALIMUMAB
     Dosage: CITRATE FREE
     Route: 058
  3. MODERNA COVID-19 VACCINE [Concomitant]
     Active Substance: ELASOMERAN
     Indication: COVID-19 immunisation
     Dosage: 1ST DOSE
     Route: 030
     Dates: start: 20210910, end: 20210910
  4. MODERNA COVID-19 VACCINE [Concomitant]
     Active Substance: ELASOMERAN
     Dosage: 2ND DOSE
     Route: 030
     Dates: start: 20211008, end: 20211008
  5. MODERNA COVID-19 VACCINE [Concomitant]
     Active Substance: ELASOMERAN
     Dosage: 3RD DOSE- BOOSTER DOSE
     Route: 030
     Dates: start: 20211112, end: 20211112

REACTIONS (7)
  - Blood potassium decreased [Recovering/Resolving]
  - Gastric disorder [Recovering/Resolving]
  - Colitis [Unknown]
  - Thrombosis [Unknown]
  - Dizziness [Unknown]
  - Myocardial infarction [Unknown]
  - Escherichia infection [Recovering/Resolving]

NARRATIVE: CASE EVENT DATE: 20210101
